FAERS Safety Report 21403838 (Version 5)
Quarter: 2022Q4

REPORT INFORMATION
  Report Type: Spontaneous
  Country: US (occurrence: US)
  Receive Date: 20221003
  Receipt Date: 20221207
  Transmission Date: 20230113
  Serious: No
  Sender: FDA-Public Use
  Company Number: US-JNJFOC-20220961743

PATIENT
  Age: 47 Year
  Sex: Female

DRUGS (5)
  1. UPTRAVI [Suspect]
     Active Substance: SELEXIPAG
     Indication: Pulmonary hypertension
     Route: 048
     Dates: start: 20210430
  2. AMBRISENTAN [Suspect]
     Active Substance: AMBRISENTAN
     Indication: Pulmonary hypertension
     Route: 065
     Dates: start: 20200115
  3. REMODULIN [Suspect]
     Active Substance: TREPROSTINIL
     Indication: Pulmonary hypertension
     Dosage: 12.22 NG, Q1MINUTE
     Route: 058
     Dates: start: 20220928
  4. REMODULIN [Suspect]
     Active Substance: TREPROSTINIL
     Dosage: 13.44 NG, Q1SECOND;
     Route: 058
     Dates: start: 202209
  5. REMODULIN [Suspect]
     Active Substance: TREPROSTINIL
     Route: 058
     Dates: start: 20220915

REACTIONS (4)
  - Headache [Unknown]
  - Nausea [Not Recovered/Not Resolved]
  - Injection site pain [Recovering/Resolving]
  - Dizziness [Unknown]
